FAERS Safety Report 5323619-2 (Version None)
Quarter: 2007Q2

REPORT INFORMATION
  Report Type: 
  Country: None (occurrence: None)
  Receive Date: 20070514
  Receipt Date: 20070430
  Transmission Date: 20071010
  Serious: Yes (Hospitalization, Other)
  Sender: FDA-Public Use
  Company Number: US-AMGEN-US196357

PATIENT
  Sex: Female

DRUGS (6)
  1. EPOGEN [Suspect]
     Indication: DIALYSIS
     Route: 042
     Dates: start: 20040101, end: 20061010
  2. NORVASC [Concomitant]
  3. FOLIC ACID [Concomitant]
  4. PROTONIX [Concomitant]
  5. INSULIN [Concomitant]
  6. GLIPIZIDE [Concomitant]

REACTIONS (2)
  - HYPOPLASTIC ANAEMIA [None]
  - MYELODYSPLASTIC SYNDROME [None]
